FAERS Safety Report 21170549 (Version 4)
Quarter: 2022Q3

REPORT INFORMATION
  Report Type: Spontaneous
  Country: CA (occurrence: CA)
  Receive Date: 20220804
  Receipt Date: 20220930
  Transmission Date: 20221027
  Serious: Yes (Hospitalization, Other)
  Sender: FDA-Public Use
  Company Number: CA-CELLTRION INC.-2022CA012314

PATIENT

DRUGS (7)
  1. INFLECTRA [Suspect]
     Active Substance: INFLIXIMAB-DYYB
     Indication: Rheumatoid arthritis
     Dosage: 500 MG EVERY 5 WEEK
     Route: 042
     Dates: start: 20220131
  2. INFLECTRA [Suspect]
     Active Substance: INFLIXIMAB-DYYB
     Dosage: 500 MG EVERY 5 WEEKS
     Route: 042
     Dates: start: 20220622
  3. INFLECTRA [Suspect]
     Active Substance: INFLIXIMAB-DYYB
     Dosage: 500 MG EVERY 5 WEEKS
     Route: 042
     Dates: start: 20220627
  4. ARAVA [Concomitant]
     Active Substance: LEFLUNOMIDE
     Dosage: 1 DF, DOSAGE NOT AVAILABLE
     Route: 065
  5. ASPIRIN [Concomitant]
     Active Substance: ASPIRIN
     Dosage: 1 DF, DOSAGE NOT AVAILABLE
     Route: 065
  6. FOLIC ACID [Concomitant]
     Active Substance: FOLIC ACID
     Dosage: 1 DF, DOSAGE NOT AVAILABLE
     Route: 065
  7. METHOTREXATE [Concomitant]
     Active Substance: METHOTREXATE
     Dosage: 1 DF DOSAGE NOT AVAILABLE
     Route: 065

REACTIONS (5)
  - Pericarditis [Not Recovered/Not Resolved]
  - Myocardial infarction [Recovered/Resolved]
  - Off label use [Unknown]
  - Arthralgia [Not Recovered/Not Resolved]
  - Gait disturbance [Not Recovered/Not Resolved]

NARRATIVE: CASE EVENT DATE: 20220101
